FAERS Safety Report 18266611 (Version 4)
Quarter: 2020Q4

REPORT INFORMATION
  Report Type: Other
  Country: JP (occurrence: JP)
  Receive Date: 20200915
  Receipt Date: 20201201
  Transmission Date: 20210113
  Serious: Yes (Hospitalization)
  Sender: FDA-Public Use
  Company Number: JP-ROCHE-2676842

PATIENT
  Age: 30 Year
  Sex: Female
  Weight: 40 kg

DRUGS (23)
  1. ACTEMRA [Suspect]
     Active Substance: TOCILIZUMAB
     Indication: STILL^S DISEASE
     Dosage: DOSAGE IS UNCERTAIN.
     Route: 041
     Dates: start: 20181001, end: 20181029
  2. PREDONINE [Concomitant]
     Active Substance: PREDNISOLONE
     Dosage: DOSAGE IS UNCERTAIN.
     Route: 048
     Dates: start: 20181015, end: 20181101
  3. PREDONINE [Concomitant]
     Active Substance: PREDNISOLONE
     Dosage: DOSAGE IS UNCERTAIN.
     Route: 048
     Dates: start: 20181104
  4. SEISHOKU [Concomitant]
     Active Substance: SODIUM CHLORIDE
     Dosage: DOSAGE IS UNCERTAIN.
     Route: 065
     Dates: start: 20181014, end: 20181017
  5. NEO-MINOPHAGEN C [Concomitant]
     Active Substance: AMMONIUM GLYCYRRHIZATE
     Dosage: DOSAGE IS UNCERTAIN.
     Route: 042
     Dates: start: 20181016, end: 20181020
  6. CALONAL [Concomitant]
     Active Substance: ACETAMINOPHEN
     Dosage: DOSAGE IS UNCERTAIN.
     Route: 048
     Dates: start: 20181003, end: 20181127
  7. BELSOMRA [Concomitant]
     Active Substance: SUVOREXANT
     Dosage: DOSAGE IS UNCERTAIN.
     Route: 048
  8. METHYLPREDNISOLONE SODIUM SUCCINATE. [Concomitant]
     Active Substance: METHYLPREDNISOLONE SODIUM SUCCINATE
     Dosage: DOSAGE IS UNCERTAIN.
     Route: 065
     Dates: start: 20181012, end: 20181014
  9. FEXOFENADINE HYDROCHLORIDE. [Concomitant]
     Active Substance: FEXOFENADINE HYDROCHLORIDE
     Dosage: DOSAGE IS UNCERTAIN.
     Route: 048
     Dates: start: 20181018, end: 20181113
  10. PICOSULFATE NA [Concomitant]
     Active Substance: SODIUM PICOSULFATE
     Dosage: DOSAGE IS UNCERTAIN.
     Route: 048
  11. MEDROL [Concomitant]
     Active Substance: METHYLPREDNISOLONE
     Dosage: DOSAGE IS UNCERTAIN.
     Route: 048
     Dates: start: 20180911
  12. URSODEOXYCHOLIC ACID [Concomitant]
     Active Substance: URSODIOL
     Dosage: DOSAGE IS UNCERTAIN.
     Route: 048
     Dates: start: 201809
  13. ANTEBATE [Concomitant]
     Active Substance: BETAMETHASONE DIPROPIONATE
     Dosage: DOSAGE IS UNCERTAIN.
     Route: 061
  14. HIRUDOID [Concomitant]
     Active Substance: GLYCOSAMINOGLYCANS
     Dosage: DOSAGE IS UNCERTAIN.
     Route: 061
  15. ZOLPIDEM TARTRATE. [Concomitant]
     Active Substance: ZOLPIDEM TARTRATE
     Dosage: DOSAGE IS UNCERTAIN.
     Route: 048
  16. NEXIUM [Concomitant]
     Active Substance: ESOMEPRAZOLE MAGNESIUM
     Dosage: DOSAGE IS UNCERTAIN.
     Route: 048
     Dates: start: 201809
  17. WARKMIN [Concomitant]
     Active Substance: ALFACALCIDOL
     Dosage: DOSAGE IS UNCERTAIN.
     Route: 048
     Dates: start: 20181002, end: 20181016
  18. CALONAL [Concomitant]
     Active Substance: ACETAMINOPHEN
     Dosage: DOSAGE IS UNCERTAIN.
     Route: 048
  19. SENNOSIDE [Concomitant]
     Active Substance: SENNOSIDES
     Dosage: DOSAGE IS UNCERTAIN.
     Route: 048
  20. PREDONINE [Concomitant]
     Active Substance: PREDNISOLONE
     Dosage: DOSAGE IS UNCERTAIN.
     Route: 048
     Dates: start: 20181004, end: 20181012
  21. RISPERIDONE. [Concomitant]
     Active Substance: RISPERIDONE
     Dosage: DOSAGE IS UNCERTAIN.
     Route: 048
  22. FEXOFENADINE HYDROCHLORIDE. [Concomitant]
     Active Substance: FEXOFENADINE HYDROCHLORIDE
     Dosage: DOSAGE IS UNCERTAIN.
     Route: 048
     Dates: start: 20181003, end: 20181011
  23. REBAMIPIDE [Concomitant]
     Active Substance: REBAMIPIDE
     Dosage: DOSAGE IS UNCERTAIN.
     Route: 048
     Dates: start: 20181018

REACTIONS (1)
  - Haemophagocytic lymphohistiocytosis [Recovering/Resolving]

NARRATIVE: CASE EVENT DATE: 20181009
